FAERS Safety Report 11263487 (Version 1)
Quarter: 2015Q3

REPORT INFORMATION
  Report Type: Spontaneous
  Country: CN (occurrence: CN)
  Receive Date: 20150713
  Receipt Date: 20150713
  Transmission Date: 20151125
  Serious: Yes (Disabling)
  Sender: FDA-Public Use
  Company Number: CN-ROCHE-1606022

PATIENT
  Age: 2 Month
  Sex: Male
  Weight: 6.4 kg

DRUGS (2)
  1. ROCEPHIN [Suspect]
     Active Substance: CEFTRIAXONE SODIUM
     Indication: PNEUMONIA ASPIRATION
     Route: 041
     Dates: start: 20150203, end: 20150206
  2. CALCIUM GLUCEPTATE [Suspect]
     Active Substance: CALCIUM GLUCEPTATE
     Indication: HYPOCALCAEMIA
     Route: 041
     Dates: start: 20150203, end: 20150205

REACTIONS (1)
  - Crystal urine [Recovering/Resolving]

NARRATIVE: CASE EVENT DATE: 20150206
